FAERS Safety Report 21381474 (Version 2)
Quarter: 2022Q4

REPORT INFORMATION
  Report Type: Report from Study
  Country: US (occurrence: US)
  Receive Date: 20220927
  Receipt Date: 20221007
  Transmission Date: 20230113
  Serious: Yes (Hospitalization)
  Sender: FDA-Public Use
  Company Number: US-ABBVIE-4130202

PATIENT
  Sex: Female

DRUGS (1)
  1. CREON [Suspect]
     Active Substance: PANCRELIPASE AMYLASE\PANCRELIPASE LIPASE\PANCRELIPASE PROTEASE
     Indication: Product used for unknown indication
     Route: 048

REACTIONS (8)
  - Fall [Unknown]
  - Feeling abnormal [Unknown]
  - Vertigo [Unknown]
  - Hospitalisation [Unknown]
  - Head injury [Unknown]
  - Unevaluable event [Unknown]
  - Rib fracture [Unknown]
  - Back pain [Unknown]

NARRATIVE: CASE EVENT DATE: 20220101
